FAERS Safety Report 18954377 (Version 1)
Quarter: 2021Q1

REPORT INFORMATION
  Report Type: Spontaneous
  Country: IR (occurrence: IR)
  Receive Date: 20210301
  Receipt Date: 20210301
  Transmission Date: 20210420
  Serious: Yes (Hospitalization, Other)
  Sender: FDA-Public Use
  Company Number: IR-NORTHSTAR HEALTHCARE HOLDINGS-IR-2021NSR000009

PATIENT
  Age: 40 Year
  Sex: Male
  Weight: 80 kg

DRUGS (1)
  1. BACLOFEN. [Suspect]
     Active Substance: BACLOFEN
     Indication: BACK PAIN
     Dosage: APPROXIMATELY 60?400 MG FOR A WEEK BEFORE SURGERY
     Route: 065

REACTIONS (1)
  - Bradycardia [Recovered/Resolved]
